FAERS Safety Report 8929180 (Version 1)
Quarter: 2012Q4

REPORT INFORMATION
  Report Type: Report from Study
  Country: CA (occurrence: CA)
  Receive Date: 20121128
  Receipt Date: 20121128
  Transmission Date: 20130627
  Serious: Yes (Other)
  Sender: FDA-Public Use
  Company Number: CA-JNJFOC-20121111272

PATIENT
  Sex: Female
  Weight: 74.5 kg

DRUGS (2)
  1. REMICADE [Suspect]
     Indication: COLITIS ULCERATIVE
     Dosage: #21 infusion
     Route: 042
     Dates: start: 20121119
  2. REMICADE [Suspect]
     Indication: COLITIS ULCERATIVE
     Dosage: 6-8 weeks
     Route: 042

REACTIONS (2)
  - Crying [Recovering/Resolving]
  - Fatigue [Recovering/Resolving]
